FAERS Safety Report 4426280-4 (Version None)
Quarter: 2004Q3

REPORT INFORMATION
  Report Type: 
  Country: None (occurrence: None)
  Receive Date: 20040811
  Receipt Date: 20040729
  Transmission Date: 20050211
  Serious: Yes (Other)
  Sender: FDA-Public Use
  Company Number: 8006925

PATIENT
  Age: 72 Year
  Sex: Male

DRUGS (2)
  1. KEPPRA [Suspect]
     Indication: EPILEPSY
     Dosage: 750 MG /D
     Dates: start: 20021217
  2. KEPPRA [Suspect]
     Indication: EPILEPSY
     Dosage: 1 G /D

REACTIONS (1)
  - POLYCYTHAEMIA VERA [None]
